FAERS Safety Report 13006308 (Version 1)
Quarter: 2016Q4

REPORT INFORMATION
  Report Type: Report from Study
  Country: US (occurrence: US)
  Receive Date: 20161207
  Receipt Date: 20161207
  Transmission Date: 20170207
  Serious: Yes (Other)
  Sender: FDA-Public Use
  Company Number: US-UCBSA-2016046141

PATIENT
  Age: 36 Year
  Sex: Male

DRUGS (1)
  1. LEVETIRACETAM. [Suspect]
     Active Substance: LEVETIRACETAM
     Indication: EPILEPSY

REACTIONS (7)
  - Generalised tonic-clonic seizure [Unknown]
  - Emotional disorder [Unknown]
  - Intellectual disability [Unknown]
  - Hallucination [Unknown]
  - Drug ineffective [Unknown]
  - Vomiting [Unknown]
  - Fear [Unknown]
